FAERS Safety Report 21565143 (Version 1)
Quarter: 2022Q4

REPORT INFORMATION
  Report Type: Report from Study
  Country: US (occurrence: US)
  Receive Date: 20221108
  Receipt Date: 20221108
  Transmission Date: 20230113
  Serious: Yes (Hospitalization, Other)
  Sender: FDA-Public Use
  Company Number: US-ABBVIE-4190086

PATIENT
  Sex: Male

DRUGS (1)
  1. HUMIRA [Suspect]
     Active Substance: ADALIMUMAB
     Indication: Product used for unknown indication
     Dosage: 40 MG FORM STRENGTH
     Route: 058

REACTIONS (4)
  - Rehabilitation therapy [Unknown]
  - Device use error [Not Recovered/Not Resolved]
  - Tremor [Unknown]
  - Mental impairment [Unknown]

NARRATIVE: CASE EVENT DATE: 20220101
